FAERS Safety Report 23673544 (Version 1)
Quarter: 2024Q1

REPORT INFORMATION
  Report Type: Spontaneous
  Country: FR (occurrence: FR)
  Receive Date: 20240326
  Receipt Date: 20240326
  Transmission Date: 20240410
  Serious: Yes (Hospitalization)
  Sender: FDA-Public Use
  Company Number: FR-B.Braun Medical Inc.-2154852

PATIENT
  Age: 74 Year
  Sex: Male
  Weight: 85 kg

DRUGS (17)
  1. HEPARIN SODIUM IN DEXTROSE [Suspect]
     Active Substance: HEPARIN SODIUM
     Dates: start: 20220325
  2. ACETAMINOPHEN [Suspect]
     Active Substance: ACETAMINOPHEN
  3. ESOMEPRAZOLE. [Concomitant]
     Active Substance: ESOMEPRAZOLE MAGNESIUM
  4. AMLODIPINE [Concomitant]
     Active Substance: AMLODIPINE BESYLATE
  5. KARDEGIC [Concomitant]
     Active Substance: ASPIRIN DL-LYSINE
  6. CANDESARTAN CILEXETIL [Concomitant]
     Active Substance: CANDESARTAN CILEXETIL
  7. ATENOLOL [Concomitant]
     Active Substance: ATENOLOL
  8. MORPHINE [Suspect]
     Active Substance: MORPHINE
  9. MORPHINE HYDROCHLORIDE [Suspect]
     Active Substance: MORPHINE HYDROCHLORIDE
  10. PREGABALIN [Suspect]
     Active Substance: PREGABALIN
  11. CLOXACILLIN [Suspect]
     Active Substance: CLOXACILLIN
  12. LANSOPRAZOLE [Suspect]
     Active Substance: LANSOPRAZOLE
  13. LEUCOVORIN CALCIUM [Suspect]
     Active Substance: LEUCOVORIN CALCIUM
  14. DAPTOMYCIN [Suspect]
     Active Substance: DAPTOMYCIN
  15. MIANSERIN HYDROCHLORIDE [Suspect]
     Active Substance: MIANSERIN HYDROCHLORIDE
  16. RIFAMPIN [Suspect]
     Active Substance: RIFAMPIN
  17. NEFOPAM HYDROCHLORIDE [Suspect]
     Active Substance: NEFOPAM HYDROCHLORIDE

REACTIONS (1)
  - Rash [Not Recovered/Not Resolved]
